FAERS Safety Report 6100101-6 (Version None)
Quarter: 2009Q1

REPORT INFORMATION
  Report Type: 
  Country: None (occurrence: None)
  Receive Date: 20090226
  Receipt Date: 20090224
  Transmission Date: 20090719
  Serious: Yes (Life-Threatening)
  Sender: FDA-Public Use
  Company Number: SP02254

PATIENT
  Sex: Male

DRUGS (6)
  1. MOVIPREP [Suspect]
     Indication: COLONOSCOPY
     Dosage: (1 LIT), ORAL
     Route: 048
     Dates: start: 20081215, end: 20081216
  2. ELTHYRONE [Concomitant]
  3. CALCIUM CARBONATE [Concomitant]
  4. LISINOPRIL [Concomitant]
  5. LASIX [Concomitant]
  6. UNI DIAMICRON [Concomitant]

REACTIONS (2)
  - DIALYSIS [None]
  - HYPERKALAEMIA [None]
